FAERS Safety Report 8728274 (Version 11)
Quarter: 2016Q4

REPORT INFORMATION
  Report Type: Spontaneous
  Country: US (occurrence: US)
  Receive Date: 20120817
  Receipt Date: 20161201
  Transmission Date: 20170207
  Serious: Yes (Hospitalization, Other)
  Sender: FDA-Public Use
  Company Number: US-PFIZER INC-2012198510

PATIENT
  Age: 60 Year
  Sex: Female
  Weight: 72 kg

DRUGS (25)
  1. PREMARIN [Suspect]
     Active Substance: ESTROGENS, CONJUGATED
     Indication: VULVOVAGINAL DRYNESS
  2. GLIMEPIRIDE. [Concomitant]
     Active Substance: GLIMEPIRIDE
     Dosage: UNK
     Dates: start: 2007
  3. CIMETIDINE [Concomitant]
     Active Substance: CIMETIDINE
     Indication: GASTROOESOPHAGEAL REFLUX DISEASE
     Dosage: 2 MG, UNK
  4. PREMARIN [Suspect]
     Active Substance: ESTROGENS, CONJUGATED
     Indication: OSTEOARTHRITIS
     Dosage: 0.625MG, 0.9 MG AND 1 MG, 1X/DAY
     Route: 048
     Dates: start: 20070827
  5. PREMARIN [Suspect]
     Active Substance: ESTROGENS, CONJUGATED
     Dosage: 0.9 MG, UNK
     Dates: start: 20100903, end: 20120210
  6. ESTRADIOL. [Suspect]
     Active Substance: ESTRADIOL
     Indication: OSTEOARTHRITIS
  7. RANITIDINE. [Concomitant]
     Active Substance: RANITIDINE
     Indication: GASTROOESOPHAGEAL REFLUX DISEASE
     Dosage: 300 MG, 2X/DAY
     Dates: start: 2007
  8. PREMARIN [Suspect]
     Active Substance: ESTROGENS, CONJUGATED
     Indication: OSTEOARTHRITIS
     Dosage: 0.625 MG, UNK
     Dates: start: 20061216
  9. PREMARIN [Suspect]
     Active Substance: ESTROGENS, CONJUGATED
     Indication: VULVOVAGINAL DRYNESS
     Dosage: 0.625 MG - 0.9 MG, UNK
     Dates: start: 20070827
  10. ESTROGEN [Concomitant]
     Active Substance: ESTRONE\SUS SCROFA OVARY
     Indication: BONE LOSS
     Dosage: UNK
     Dates: start: 20090728, end: 20100105
  11. ESTRACE [Concomitant]
     Active Substance: ESTRADIOL
     Indication: HORMONE REPLACEMENT THERAPY
     Dosage: 1 MG, UNK
     Dates: start: 20070827, end: 20120210
  12. ESTRACE [Concomitant]
     Active Substance: ESTRADIOL
     Dosage: 0.5 MG, UNK
     Dates: start: 20111118, end: 20120210
  13. PREMARIN [Suspect]
     Active Substance: ESTROGENS, CONJUGATED
     Indication: BONE DISORDER
     Dosage: 0.625 MG, UNK
     Route: 048
     Dates: start: 20070927, end: 20080927
  14. PREMARIN [Suspect]
     Active Substance: ESTROGENS, CONJUGATED
     Indication: OSTEOPOROSIS
     Dosage: 0.9 MG, UNK
     Dates: start: 2009, end: 201206
  15. ESTRADIOL. [Suspect]
     Active Substance: ESTRADIOL
     Indication: OSTEOPOROSIS PROPHYLAXIS
     Dosage: 0.5 MG - 1MG, UNK
     Dates: start: 20070827, end: 20120210
  16. ESTRACE [Concomitant]
     Active Substance: ESTRADIOL
     Dosage: 0.5 MG, UNK
     Dates: start: 20070119
  17. PREMARIN [Suspect]
     Active Substance: ESTROGENS, CONJUGATED
     Indication: OSTEOPOROSIS PROPHYLAXIS
     Dosage: 0.625 MG, UNK
     Dates: start: 20061216
  18. ESTRACE [Concomitant]
     Active Substance: ESTRADIOL
     Dosage: 1 MG, UNK
     Dates: start: 20111118, end: 20120210
  19. NOVOLOG MIX 70/30 [Concomitant]
     Active Substance: INSULIN ASPART
     Dosage: TWICE DAILY (20 UNITS A DAY)
     Dates: start: 20140612
  20. ESTROGEN [Concomitant]
     Active Substance: ESTRONE\SUS SCROFA OVARY
     Dosage: UNK
     Dates: start: 20070827, end: 20120210
  21. PREMARIN [Suspect]
     Active Substance: ESTROGENS, CONJUGATED
     Indication: BONE LOSS
     Dosage: 0.625 MG, UNK
     Dates: start: 20070927, end: 20080927
  22. TYLENOL [Concomitant]
     Active Substance: ACETAMINOPHEN
  23. PREMARIN [Suspect]
     Active Substance: ESTROGENS, CONJUGATED
     Indication: HOT FLUSH
     Dosage: 0.9 MG, UNK
     Dates: start: 20081124, end: 20120210
  24. ESTRADIOL. [Suspect]
     Active Substance: ESTRADIOL
     Indication: BONE LOSS
  25. HUMULIN 70/30 [Concomitant]
     Active Substance: INSULIN HUMAN
     Indication: DIABETES MELLITUS
     Dosage: UNK, 2X/DAY
     Dates: start: 2011, end: 20141218

REACTIONS (31)
  - Uterine cancer [Unknown]
  - Platelet count decreased [Unknown]
  - Endometrial hyperplasia [Unknown]
  - Cervical polyp [Unknown]
  - Vaginal haemorrhage [Unknown]
  - Condition aggravated [Not Recovered/Not Resolved]
  - Endometrial disorder [Unknown]
  - Gallbladder disorder [Unknown]
  - Vaginal discharge [Unknown]
  - Endometrial thickening [Unknown]
  - Emotional disorder [Unknown]
  - Postmenopausal haemorrhage [Unknown]
  - Pain [Not Recovered/Not Resolved]
  - Chronic obstructive pulmonary disease [Not Recovered/Not Resolved]
  - Neoplasm malignant [Unknown]
  - Red blood cell count decreased [Unknown]
  - Cervix neoplasm [Unknown]
  - Blood count abnormal [Unknown]
  - Cataract [Unknown]
  - Hypertension [Not Recovered/Not Resolved]
  - Haemorrhage [Unknown]
  - Vaginal disorder [Unknown]
  - Night blindness [Unknown]
  - Retinal disorder [Not Recovered/Not Resolved]
  - Uterine spasm [Unknown]
  - Arthralgia [Unknown]
  - Abdominal distension [Unknown]
  - Uterine disorder [Not Recovered/Not Resolved]
  - Product use issue [Unknown]
  - Back pain [Unknown]
  - Eye pain [Unknown]

NARRATIVE: CASE EVENT DATE: 2007
